FAERS Safety Report 15023703 (Version 1)
Quarter: 2018Q2

REPORT INFORMATION
  Report Type: Report from Study
  Country: US (occurrence: US)
  Receive Date: 20180618
  Receipt Date: 20180618
  Transmission Date: 20180711
  Serious: Yes (Hospitalization)
  Sender: FDA-Public Use
  Company Number: US-MYLANLABS-2018M1040173

PATIENT
  Age: 54 Year
  Sex: Male
  Weight: 96 kg

DRUGS (2)
  1. HYDROCHLOROTHIAZIDE/VALSARTAN [Suspect]
     Active Substance: HYDROCHLOROTHIAZIDE\VALSARTAN
     Indication: HYPERTENSION
     Route: 048
  2. GLATIRAMER ACETATE INJECTION [Suspect]
     Active Substance: GLATIRAMER ACETATE
     Indication: RELAPSING-REMITTING MULTIPLE SCLEROSIS
     Dosage: 40 MG, 3XW
     Route: 058

REACTIONS (5)
  - Weight increased [Unknown]
  - Movement disorder [Recovering/Resolving]
  - Cerebrovascular accident [Recovering/Resolving]
  - Asthenia [Recovering/Resolving]
  - Thrombosis [Recovering/Resolving]

NARRATIVE: CASE EVENT DATE: 20180403
